FAERS Safety Report 14770033 (Version 2)
Quarter: 2018Q2

REPORT INFORMATION
  Report Type: Report from Study
  Country: None (occurrence: US)
  Receive Date: 20180417
  Receipt Date: 20180515
  Transmission Date: 20180711
  Serious: Yes (Death, Life-Threatening, Hospitalization)
  Sender: FDA-Public Use
  Company Number: US-ABBVIE-18P-163-2319195-00

PATIENT
  Age: 84 Year
  Sex: Female
  Weight: 81.3 kg

DRUGS (4)
  1. VENETOCLAX. [Suspect]
     Active Substance: VENETOCLAX
     Dosage: DAYS 1  28 OF 28 DAY CYCLE
     Route: 048
     Dates: start: 20180310, end: 20180405
  2. AZACITIDINE. [Suspect]
     Active Substance: AZACITIDINE
     Indication: ACUTE MYELOID LEUKAEMIA
     Dosage: DAY 1-7 OF EACH 28-DAY CYCLE
     Route: 058
     Dates: start: 20180308, end: 20180314
  3. VENETOCLAX. [Suspect]
     Active Substance: VENETOCLAX
     Indication: ACUTE MYELOID LEUKAEMIA
     Dosage: DAYS 1  28 OF 28 DAY CYCLE
     Route: 048
     Dates: start: 20180308, end: 20180308
  4. VENETOCLAX. [Suspect]
     Active Substance: VENETOCLAX
     Dosage: DAYS 1  28 OF 28 DAY CYCLE
     Route: 048
     Dates: start: 20180309, end: 20180309

REACTIONS (1)
  - Lung infection [Fatal]

NARRATIVE: CASE EVENT DATE: 20180408
